FAERS Safety Report 5963506-X (Version None)
Quarter: 2008Q4

REPORT INFORMATION
  Report Type: 
  Country: None (occurrence: None)
  Receive Date: 20081124
  Receipt Date: 20081024
  Transmission Date: 20090506
  Serious: No
  Sender: FDA-Public Use
  Company Number: US-BAYER-200813777BCC

PATIENT
  Sex: Female

DRUGS (3)
  1. MIDOL [Suspect]
     Indication: DRUG USE FOR UNKNOWN INDICATION
  2. TYLENOL (CAPLET) [Suspect]
  3. TYLENOL (CAPLET) [Concomitant]

REACTIONS (1)
  - PSYCHOMOTOR HYPERACTIVITY [None]
